FAERS Safety Report 6794188-5 (Version None)
Quarter: 2010Q2

REPORT INFORMATION
  Report Type: 
  Country: None (occurrence: None)
  Receive Date: 20100624
  Receipt Date: 20080204
  Transmission Date: 20101027
  Serious: No
  Sender: FDA-Public Use
  Company Number: US-PFIZER INC-ENC200800024

PATIENT
  Age: 63 Year
  Sex: Female
  Weight: 129.25 kg

DRUGS (11)
  1. ARGATROBAN [Suspect]
     Indication: PULMONARY EMBOLISM
     Dosage: FREQUENCY:  HR
     Route: 042
     Dates: start: 20080204, end: 20080204
  2. ARGATROBAN [Suspect]
     Indication: HEPARIN-INDUCED THROMBOCYTOPENIA
  3. HEPARIN [Concomitant]
     Dates: end: 20080101
  4. MAALOX [Concomitant]
  5. INSULIN GLARGINE [Concomitant]
  6. INSULIN [Concomitant]
  7. LACTULOSE [Concomitant]
  8. TEMAZEPAM [Concomitant]
  9. PROMETHAZINE [Concomitant]
  10. ZOSYN [Concomitant]
  11. SODIUM CHLORIDE [Concomitant]

REACTIONS (2)
  - COAGULATION TIME PROLONGED [None]
  - OVERDOSE [None]
